FAERS Safety Report 23150556 (Version 1)
Quarter: 2023Q4

REPORT INFORMATION
  Report Type: Other
  Country: CN (occurrence: CN)
  Receive Date: 20231106
  Receipt Date: 20231106
  Transmission Date: 20240109
  Serious: Yes (Other)
  Sender: FDA-Public Use
  Company Number: CN-GE HEALTHCARE-2023CSU009690

PATIENT
  Age: 50 Year
  Sex: Female
  Weight: 55 kg

DRUGS (5)
  1. VISIPAQUE [Suspect]
     Active Substance: IODIXANOL
     Indication: Skin test
     Dosage: UNK, SINGLE
     Route: 023
     Dates: start: 20230908, end: 20230908
  2. VISIPAQUE [Suspect]
     Active Substance: IODIXANOL
     Indication: Computerised tomogram
     Dosage: 100 ML, SINGLE
     Route: 041
     Dates: start: 20230908, end: 20230908
  3. VISIPAQUE [Suspect]
     Active Substance: IODIXANOL
     Indication: Pneumonia
  4. VISIPAQUE [Suspect]
     Active Substance: IODIXANOL
     Indication: Lymphangioma
  5. CEFUROXIME SODIUM [Concomitant]
     Active Substance: CEFUROXIME SODIUM
     Indication: Pneumonia
     Dosage: 1.5 GM, BID
     Route: 041
     Dates: start: 20230905, end: 20230908

REACTIONS (1)
  - Anaphylactoid reaction [Recovered/Resolved]

NARRATIVE: CASE EVENT DATE: 20230908
